FAERS Safety Report 8123039-1 (Version None)
Quarter: 2012Q1

REPORT INFORMATION
  Report Type: 
  Country: None (occurrence: None)
  Receive Date: 20120208
  Receipt Date: 20120130
  Transmission Date: 20120608
  Serious: Yes (Other)
  Sender: FDA-Public Use
  Company Number: PHHY2012US007718

PATIENT
  Age: 78 Year
  Sex: Female

DRUGS (5)
  1. ACTONEL [Concomitant]
  2. QUINAPRIL [Concomitant]
     Route: 048
  3. HYDROCHLOROTHIAZIDE [Concomitant]
     Route: 048
  4. LOVASTATIN [Concomitant]
     Route: 048
  5. BUFFERIN [Suspect]
     Dosage: 2 DF, AT A TIME
     Route: 048

REACTIONS (2)
  - SWELLING FACE [None]
  - LIP SWELLING [None]
